FAERS Safety Report 6410735-7 (Version None)
Quarter: 2009Q4

REPORT INFORMATION
  Report Type: 
  Country: None (occurrence: None)
  Receive Date: 20091022
  Receipt Date: 20091014
  Transmission Date: 20100525
  Serious: Yes (Hospitalization)
  Sender: FDA-Public Use
  Company Number: JP-ASTRAZENECA-2009SE04948

PATIENT
  Age: 70 Year
  Sex: Male
  Weight: 45 kg

DRUGS (12)
  1. IRESSA [Suspect]
     Indication: LUNG ADENOCARCINOMA
     Route: 048
     Dates: start: 20090604, end: 20090710
  2. ASPIRIN [Concomitant]
     Indication: AORTIC ANEURYSM
     Route: 048
  3. PARIET [Concomitant]
     Indication: GASTRIC ULCER
     Route: 048
  4. ALLOPURINOL [Concomitant]
     Indication: GOUT
     Route: 048
  5. LASIX [Concomitant]
     Indication: OEDEMA
     Route: 048
  6. FLIVAS [Concomitant]
     Indication: BENIGN PROSTATIC HYPERPLASIA
     Route: 048
  7. ONON [Concomitant]
     Indication: ASTHMA
     Route: 048
  8. BAKTAR [Concomitant]
     Indication: ANTIBIOTIC PROPHYLAXIS
     Route: 048
  9. PREDONINE [Concomitant]
     Indication: PROPHYLAXIS
     Route: 048
  10. MAGMITT [Concomitant]
     Indication: CONSTIPATION
     Route: 048
  11. ADOAIR [Concomitant]
     Indication: ASTHMA
     Route: 055
  12. ZOFRAN [Concomitant]
     Indication: GASTROINTESTINAL DISORDER
     Route: 048
     Dates: start: 20090601, end: 20090605

REACTIONS (3)
  - DIARRHOEA [None]
  - PNEUMONIA [None]
  - VOMITING [None]
